FAERS Safety Report 7218614-2 (Version None)
Quarter: 2011Q1

REPORT INFORMATION
  Report Type: 
  Country: None (occurrence: None)
  Receive Date: 20110110
  Receipt Date: 20101231
  Transmission Date: 20110831
  Serious: Yes (Death)
  Sender: FDA-Public Use
  Company Number: US-PFIZER INC-2011000423

PATIENT
  Age: 41 Year
  Sex: Male

DRUGS (6)
  1. PHENYTOIN [Suspect]
     Route: 048
  2. ALPRAZOLAM [Suspect]
     Route: 048
  3. DIAZEPAM [Suspect]
     Route: 048
  4. PHENOBARBITAL [Suspect]
     Route: 048
  5. DIPHENHYDRAMINE [Suspect]
     Route: 048
  6. COCAINE [Suspect]
     Route: 055

REACTIONS (3)
  - ACCIDENTAL EXPOSURE [None]
  - CARDIAC ARREST [None]
  - RESPIRATORY ARREST [None]
